FAERS Safety Report 7264645-6 (Version None)
Quarter: 2011Q1

REPORT INFORMATION
  Report Type: 
  Country: None (occurrence: None)
  Receive Date: 20110119
  Receipt Date: 20101210
  Transmission Date: 20110831
  Serious: Yes (Hospitalization)
  Sender: FDA-Public Use
  Company Number: 024879

PATIENT
  Sex: Male

DRUGS (6)
  1. CIMZIA [Suspect]
     Indication: CROHN'S DISEASE
     Dosage: (SUBCUTANEOUS)
     Route: 058
     Dates: start: 20090605
  2. SPIRONOLACTONE [Concomitant]
  3. LIPITOR [Concomitant]
  4. ASA [Concomitant]
  5. LASIX [Concomitant]
  6. COREG [Concomitant]

REACTIONS (1)
  - HOSPITALISATION [None]
